FAERS Safety Report 20672960 (Version 1)
Quarter: 2022Q2

REPORT INFORMATION
  Report Type: Spontaneous
  Country: US (occurrence: None)
  Receive Date: 20220403
  Receipt Date: 20220403
  Transmission Date: 20220720
  Serious: Yes (Hospitalization, Other)
  Sender: FDA-Public Use
  Company Number: None

PATIENT
  Age: 86 Year
  Sex: Male
  Weight: 84.37 kg

DRUGS (2)
  1. EVUSHELD [Suspect]
     Active Substance: CILGAVIMAB\TIXAGEVIMAB
     Indication: Prophylaxis
     Dosage: OTHER QUANTITY : 150/150MG;?FREQUENCY : ONCE;?
     Route: 030
     Dates: start: 20220318, end: 20220318
  2. EVUSHELD [Suspect]
     Active Substance: CILGAVIMAB\TIXAGEVIMAB
     Indication: Coronavirus infection

REACTIONS (4)
  - Fatigue [None]
  - Dyspnoea [None]
  - Respiratory failure [None]
  - Cardiac function test abnormal [None]

NARRATIVE: CASE EVENT DATE: 20220320
